FAERS Safety Report 5431191-1 (Version None)
Quarter: 2007Q3

REPORT INFORMATION
  Report Type: 
  Country: None (occurrence: None)
  Receive Date: 20070830
  Receipt Date: 20070522
  Transmission Date: 20080115
  Serious: No
  Sender: FDA-Public Use
  Company Number: A0644158A

PATIENT

DRUGS (3)
  1. WELLBUTRIN [Suspect]
     Indication: DRUG USE FOR UNKNOWN INDICATION
     Dosage: 300MG UNKNOWN
     Route: 048
     Dates: start: 20070201
  2. METOPROLOL SUCCINATE [Concomitant]
  3. DEPAKOTE [Concomitant]
     Indication: BIPOLAR II DISORDER

REACTIONS (5)
  - ANXIETY [None]
  - INSOMNIA [None]
  - NAUSEA [None]
  - OEDEMA [None]
  - TINNITUS [None]
